FAERS Safety Report 16866777 (Version 1)
Quarter: 2019Q3

REPORT INFORMATION
  Report Type: Spontaneous
  Country: DE (occurrence: DE)
  Receive Date: 20190930
  Receipt Date: 20190930
  Transmission Date: 20191005
  Serious: Yes (Life-Threatening, Hospitalization, Other)
  Sender: FDA-Public Use
  Company Number: PHHY2019DE225532

PATIENT
  Age: 65 Year
  Sex: Male

DRUGS (1)
  1. TOPOTECAN HCL [Suspect]
     Active Substance: TOPOTECAN HYDROCHLORIDE
     Indication: LUNG NEOPLASM MALIGNANT
     Dosage: 2.3 MG/M2, UNK
     Route: 048

REACTIONS (5)
  - Sepsis [Recovering/Resolving]
  - Platelet count abnormal [Recovering/Resolving]
  - Feeling abnormal [Unknown]
  - White blood cell count decreased [Recovering/Resolving]
  - Haematotoxicity [Unknown]
